FAERS Safety Report 10785882 (Version 3)
Quarter: 2015Q2

REPORT INFORMATION
  Report Type: Spontaneous
  Country: US (occurrence: US)
  Receive Date: 20150211
  Receipt Date: 20150610
  Transmission Date: 20150821
  Serious: Yes (Other)
  Sender: FDA-Public Use
  Company Number: US-B.I. PHARMACEUTICALS,INC./RIDGEFIELD-2015-BI-06515BP

PATIENT
  Age: 57 Year
  Sex: Female
  Weight: 67.59 kg

DRUGS (5)
  1. JARDIANCE [Suspect]
     Active Substance: EMPAGLIFLOZIN
     Indication: TYPE 2 DIABETES MELLITUS
     Dosage: 10 MG
     Route: 048
     Dates: start: 20141017, end: 20150126
  2. URSODIOL. [Concomitant]
     Active Substance: URSODIOL
     Indication: BILE DUCT STONE
     Dosage: 150 MG
     Route: 065
  3. ASA [Concomitant]
     Active Substance: ASPIRIN
     Indication: DIABETES MELLITUS
     Dosage: FORMULATION: ENTERIC COATED (EC)
     Route: 065
     Dates: start: 20140822
  4. TRICOR [Concomitant]
     Active Substance: FENOFIBRATE
     Indication: HYPERLIPIDAEMIA
     Dosage: 290 MG
     Route: 065
     Dates: start: 20140919
  5. BENICAR [Concomitant]
     Active Substance: OLMESARTAN MEDOXOMIL
     Indication: HYPERTENSION
     Dosage: 40 MG
     Route: 065

REACTIONS (2)
  - Renal impairment [Recovered/Resolved]
  - Glomerular filtration rate decreased [Recovered/Resolved]

NARRATIVE: CASE EVENT DATE: 20141017
